FAERS Safety Report 11693379 (Version 1)
Quarter: 2015Q4

REPORT INFORMATION
  Report Type: Spontaneous
  Country: US (occurrence: None)
  Receive Date: 20151102
  Receipt Date: 20151102
  Transmission Date: 20160304
  Serious: Yes (Life-Threatening, Hospitalization, Disabling, Other)
  Sender: FDA-Public Use
  Company Number: None

PATIENT
  Age: 63 Year
  Sex: Male
  Weight: 114.31 kg

DRUGS (1)
  1. BRILINTA [Suspect]
     Active Substance: TICAGRELOR
     Dosage: 2, ONCE DAILY, TAKEN BY MOUTH
     Route: 048

REACTIONS (3)
  - Seizure [None]
  - Cerebrovascular accident [None]
  - Cerebral haemorrhage [None]

NARRATIVE: CASE EVENT DATE: 20150325
